FAERS Safety Report 21452454 (Version 1)
Quarter: 2022Q4

REPORT INFORMATION
  Report Type: Spontaneous
  Country: CN (occurrence: None)
  Receive Date: 20221013
  Receipt Date: 20221013
  Transmission Date: 20230113
  Serious: Yes (Other)
  Sender: FDA-Public Use
  Company Number: CN-ROCHE-3197167

PATIENT
  Age: 64 Year
  Sex: Female
  Weight: 74.5 kg

DRUGS (2)
  1. HERCEPTIN [Suspect]
     Active Substance: TRASTUZUMAB
     Indication: Breast cancer
     Route: 041
     Dates: start: 20200507, end: 20200507
  2. SODIUM CHLORIDE [Concomitant]
     Active Substance: SODIUM CHLORIDE
     Route: 041
     Dates: start: 20200507, end: 20200507

REACTIONS (6)
  - Chills [Recovering/Resolving]
  - Temperature intolerance [Recovering/Resolving]
  - Respiratory rate increased [Recovering/Resolving]
  - Chest discomfort [Recovering/Resolving]
  - Blood pressure increased [Recovering/Resolving]
  - Pyrexia [Recovered/Resolved]

NARRATIVE: CASE EVENT DATE: 20200507
